FAERS Safety Report 15882785 (Version 2)
Quarter: 2019Q1

REPORT INFORMATION
  Report Type: Spontaneous
  Country: US (occurrence: US)
  Receive Date: 20190129
  Receipt Date: 20190308
  Transmission Date: 20190417
  Serious: No
  Sender: FDA-Public Use
  Company Number: US-ASTRAZENECA-2019SE14069

PATIENT
  Age: 18070 Day
  Sex: Male
  Weight: 101.6 kg

DRUGS (1)
  1. BYDUREON BCISE [Suspect]
     Active Substance: EXENATIDE
     Indication: TYPE 2 DIABETES MELLITUS
     Route: 058
     Dates: start: 201812

REACTIONS (6)
  - Device leakage [Unknown]
  - Injection site pain [Recovered/Resolved]
  - Injection site scar [Recovered/Resolved]
  - Injection site mass [Recovered/Resolved]
  - Injection site extravasation [Unknown]
  - Injection site swelling [Recovered/Resolved]

NARRATIVE: CASE EVENT DATE: 20190120
